FAERS Safety Report 6969224-3 (Version None)
Quarter: 2010Q3

REPORT INFORMATION
  Report Type: 
  Country: None (occurrence: None)
  Receive Date: 20100907
  Receipt Date: 20100826
  Transmission Date: 20110219
  Serious: Yes (Other)
  Sender: FDA-Public Use
  Company Number: JP-PFIZER INC-2010111582

PATIENT
  Age: 46 Year
  Sex: Male

DRUGS (2)
  1. AMLODIPINE BESYLATE [Suspect]
     Dosage: UNK
  2. CANDESARTAN CILEXETIL [Suspect]

REACTIONS (3)
  - MALAISE [None]
  - OVERDOSE [None]
  - RENAL FAILURE ACUTE [None]
